FAERS Safety Report 18570068 (Version 1)
Quarter: 2020Q4

REPORT INFORMATION
  Report Type: Spontaneous
  Country: US (occurrence: US)
  Receive Date: 20201202
  Receipt Date: 20201202
  Transmission Date: 20210114
  Serious: No
  Sender: FDA-Public Use
  Company Number: US-HORIZON-2020HZN01901

PATIENT
  Age: 7 Month
  Sex: Female

DRUGS (1)
  1. RAVICTI [Suspect]
     Active Substance: GLYCEROL PHENYLBUTYRATE
     Indication: ARGININOSUCCINATE LYASE DEFICIENCY
     Dosage: 0.5ML (0.55G), ORAL, EVERY 8 HOURS, AT 2 AM, 10 AM, AND 6 PM ; TIME INTERVAL:
     Route: 050

REACTIONS (1)
  - Vomiting [Unknown]
